FAERS Safety Report 8995207 (Version 1)
Quarter: 2012Q4

REPORT INFORMATION
  Report Type: Spontaneous
  Country: HK (occurrence: None)
  Receive Date: 20121221
  Receipt Date: 20121221
  Transmission Date: 20130627
  Serious: Yes (Other)
  Sender: FDA-Public Use
  Company Number: B0853767A

PATIENT
  Age: 44 Year
  Sex: Female

DRUGS (1)
  1. PROPRANOLOL HYDROCHLORIDE [Suspect]
     Indication: PRODUCT USED FOR UNKNOWN INDICATION
     Route: 048

REACTIONS (11)
  - Overdose [None]
  - Grand mal convulsion [None]
  - Depressed level of consciousness [None]
  - Hypotension [None]
  - Sinus bradycardia [None]
  - Convulsion [None]
  - Electrocardiogram QRS complex prolonged [None]
  - Bundle branch block right [None]
  - Electrocardiogram ST segment elevation [None]
  - Electrocardiogram abnormal [None]
  - Ventricular arrhythmia [None]
